FAERS Safety Report 11099176 (Version 1)
Quarter: 2015Q2

REPORT INFORMATION
  Report Type: Spontaneous
  Country: PT (occurrence: None)
  Receive Date: 20150506
  Receipt Date: 20150506
  Transmission Date: 20150821
  Serious: Yes (Hospitalization)
  Sender: FDA-Public Use
  Company Number: MAC-15-043

PATIENT
  Age: 45 Year
  Sex: Female

DRUGS (2)
  1. TROSPIUM CHLORIDE. [Suspect]
     Active Substance: TROSPIUM CHLORIDE
     Indication: CYSTITIS
     Dosage: 20MG, UNK, ORAL
     Route: 048
  2. SULFAMETHOXAZOLE 800MG + TRIMETHOPRIM 160MG TABLET [Suspect]
     Active Substance: SULFAMETHOXAZOLE\TRIMETHOPRIM
     Indication: CYSTITIS
     Dosage: 800MG + 160MG, UNK, ORAL
     Route: 048

REACTIONS (6)
  - Pruritus generalised [None]
  - Headache [None]
  - Flat anterior chamber of eye [None]
  - Sudden visual loss [None]
  - Myopia [None]
  - Angle closure glaucoma [None]
